FAERS Safety Report 6927773-8 (Version None)
Quarter: 2010Q3

REPORT INFORMATION
  Report Type: 
  Country: None (occurrence: None)
  Receive Date: 20100816
  Receipt Date: 20100816
  Transmission Date: 20110219
  Serious: Yes (Other)
  Sender: FDA-Public Use
  Company Number: None

PATIENT
  Sex: Female
  Weight: 143.3367 kg

DRUGS (10)
  1. VANCOMYCIN [Suspect]
     Indication: DEVICE RELATED INFECTION
     Dosage: 2000MG 8/11,13,16,18 + 20 IV DRIP  2 HR INFUSION
     Route: 041
     Dates: start: 20100811, end: 20100811
  2. VANCOMYCIN [Suspect]
     Indication: PERITONEAL DIALYSIS
     Dosage: 2000MG 8/11,13,16,18 + 20 IV DRIP  2 HR INFUSION
     Route: 041
     Dates: start: 20100811, end: 20100811
  3. VANCOMYCIN [Suspect]
     Indication: RENAL FAILURE CHRONIC
     Dosage: 2000MG 8/11,13,16,18 + 20 IV DRIP  2 HR INFUSION
     Route: 041
     Dates: start: 20100811, end: 20100811
  4. ARANESP [Concomitant]
  5. RENAGEL [Concomitant]
  6. EPOGEN [Concomitant]
  7. LOSARTAN POTASSIUM [Concomitant]
  8. LASIX [Concomitant]
  9. CALCITRIOL [Concomitant]
  10. NS AND HEPARIN FLUSH [Concomitant]

REACTIONS (8)
  - CHILLS [None]
  - COLD SWEAT [None]
  - HYPOAESTHESIA [None]
  - NAUSEA [None]
  - PARAESTHESIA ORAL [None]
  - PRURITUS [None]
  - PYREXIA [None]
  - VOMITING [None]
